FAERS Safety Report 10180018 (Version 1)
Quarter: 2014Q2

REPORT INFORMATION
  Report Type: Spontaneous
  Country: US (occurrence: US)
  Receive Date: 20140519
  Receipt Date: 20140519
  Transmission Date: 20141212
  Serious: No
  Sender: FDA-Public Use
  Company Number: US-BRISTOL-MYERS SQUIBB COMPANY-20468518

PATIENT
  Age: 51 Year
  Sex: Male

DRUGS (5)
  1. BARACLUDE [Suspect]
  2. LITHIUM [Concomitant]
  3. PAXIL [Concomitant]
  4. METHADONE [Concomitant]
  5. LISINOPRIL [Concomitant]

REACTIONS (1)
  - Drug dose omission [Recovering/Resolving]
